FAERS Safety Report 22911380 (Version 2)
Quarter: 2024Q3

REPORT INFORMATION
  Report Type: Spontaneous
  Country: CN (occurrence: CN)
  Receive Date: 20230906
  Receipt Date: 20240729
  Transmission Date: 20241016
  Serious: Yes (Hospitalization)
  Sender: AMGEN
  Company Number: CN-AMGEN-CHNSP2023152771

PATIENT
  Age: 8 Year
  Sex: Male

DRUGS (5)
  1. XGEVA [Suspect]
     Active Substance: DENOSUMAB
     Indication: Bone giant cell tumour benign
     Dosage: 80 MILLIGRAM, QWK (FOR THE FIRST MONTH OF TREATMENT)
     Route: 058
  2. XGEVA [Suspect]
     Active Substance: DENOSUMAB
     Dosage: 120 MILLIGRAM, QMO
     Route: 058
  3. XGEVA [Suspect]
     Active Substance: DENOSUMAB
     Dosage: UNK
     Route: 065
  4. CALCIUM [Concomitant]
     Active Substance: CALCIUM
     Indication: Mineral supplementation
     Dosage: UNK
     Route: 065
  5. VITAMIN D3 [Concomitant]
     Active Substance: CHOLECALCIFEROL
     Indication: Vitamin supplementation
     Dosage: UNK
     Route: 065

REACTIONS (9)
  - Acute kidney injury [Recovered/Resolved]
  - Bone giant cell tumour benign [Unknown]
  - Blood parathyroid hormone decreased [Unknown]
  - Atrioventricular block first degree [Unknown]
  - Electrocardiogram ST-T segment abnormal [Unknown]
  - Electrocardiogram high voltage [Unknown]
  - Hypercalcaemia [Recovered/Resolved]
  - Bone disorder [Recovering/Resolving]
  - Off label use [Unknown]
